FAERS Safety Report 4661416-1 (Version None)
Quarter: 2005Q2

REPORT INFORMATION
  Report Type: 
  Country: None (occurrence: None)
  Receive Date: 20050513
  Receipt Date: 20050505
  Transmission Date: 20051028
  Serious: Yes (Other)
  Sender: FDA-Public Use
  Company Number: CA-GLAXOSMITHKLINE-A0557617A

PATIENT
  Age: 3 Month
  Sex: Female

DRUGS (2)
  1. ZANTAC [Suspect]
     Indication: DRUG USE FOR UNKNOWN INDICATION
     Dosage: 120MG PER DAY
     Route: 048
  2. MAXERAN [Concomitant]

REACTIONS (7)
  - ACCIDENTAL OVERDOSE [None]
  - AGITATION [None]
  - DIARRHOEA [None]
  - HEPATIC ENZYME ABNORMAL [None]
  - INSOMNIA [None]
  - IRRITABILITY [None]
  - THIRST [None]
